FAERS Safety Report 20561575 (Version 2)
Quarter: 2022Q1

REPORT INFORMATION
  Report Type: Report from Study
  Country: US (occurrence: US)
  Receive Date: 20220307
  Receipt Date: 20220316
  Transmission Date: 20220423
  Serious: No
  Sender: FDA-Public Use
  Company Number: US-TAKEDA-2022TUS014693

PATIENT
  Sex: Male

DRUGS (1)
  1. PRUCALOPRIDE [Suspect]
     Active Substance: PRUCALOPRIDE
     Indication: Product used for unknown indication
     Dosage: 1 DOSAGE FORM (2 MILLIGRAM), QD
     Route: 048

REACTIONS (2)
  - Product distribution issue [Unknown]
  - Defaecation disorder [Unknown]
